FAERS Safety Report 8517617-5 (Version None)
Quarter: 2012Q3

REPORT INFORMATION
  Report Type: 
  Country: None (occurrence: None)
  Receive Date: 20120718
  Receipt Date: 20120709
  Transmission Date: 20120928
  Serious: Yes (Hospitalization)
  Sender: FDA-Public Use
  Company Number: VE-ASTRAZENECA-2012SE47972

PATIENT
  Age: 10 Year
  Sex: Female
  Weight: 28 kg

DRUGS (1)
  1. MEROPENEM [Suspect]
     Indication: URINARY TRACT INFECTION
     Dosage: 120MG/KG/DAY
     Route: 042
     Dates: start: 20120607, end: 20120610

REACTIONS (1)
  - SOFT TISSUE NECROSIS [None]
